FAERS Safety Report 7287489-8 (Version None)
Quarter: 2011Q1

REPORT INFORMATION
  Report Type: 
  Country: None (occurrence: None)
  Receive Date: 20110211
  Receipt Date: 20110203
  Transmission Date: 20110831
  Serious: Yes (Hospitalization)
  Sender: FDA-Public Use
  Company Number: IN-BRISTOL-MYERS SQUIBB COMPANY-15508716

PATIENT
  Age: 54 Year
  Sex: Female

DRUGS (5)
  1. ONGLYZA [Suspect]
     Indication: TYPE 2 DIABETES MELLITUS
     Route: 048
     Dates: start: 20100601
  2. METFORMIN HCL [Suspect]
     Indication: TYPE 2 DIABETES MELLITUS
     Route: 048
     Dates: start: 20100601
  3. PANTOPRAZOLE [Concomitant]
  4. GLIMEPIRIDE [Concomitant]
     Indication: TYPE 2 DIABETES MELLITUS
  5. FENOFIBRATE [Concomitant]

REACTIONS (2)
  - PANCREATITIS [None]
  - ACUTE RESPIRATORY DISTRESS SYNDROME [None]
